FAERS Safety Report 6723071-6 (Version None)
Quarter: 2010Q2

REPORT INFORMATION
  Report Type: 
  Country: None (occurrence: None)
  Receive Date: 20100513
  Receipt Date: 20100506
  Transmission Date: 20101027
  Serious: No
  Sender: FDA-Public Use
  Company Number: US-BIOGENIDEC-2010BI015479

PATIENT
  Sex: Female

DRUGS (1)
  1. AVONEX [Suspect]
     Indication: MULTIPLE SCLEROSIS
     Route: 030
     Dates: start: 20080722

REACTIONS (4)
  - AFFECT LABILITY [None]
  - INJECTION SITE PAIN [None]
  - MEMORY IMPAIRMENT [None]
  - MENSTRUAL DISORDER [None]
